FAERS Safety Report 10939885 (Version 1)
Quarter: 2015Q1

REPORT INFORMATION
  Report Type: Spontaneous
  Country: US (occurrence: None)
  Receive Date: 20150212
  Receipt Date: 20150212
  Transmission Date: 20150721
  Serious: No
  Sender: FDA-Public Use
  Company Number: TPA2010A06276

PATIENT
  Age: 89 Year
  Sex: Female

DRUGS (5)
  1. ULORIC [Suspect]
     Active Substance: FEBUXOSTAT
  2. METOPROLOL (METOPROLOL) [Concomitant]
     Active Substance: METOPROLOL
  3. DYNACIRC (ISRADIPINE) [Concomitant]
  4. LASIX [Concomitant]
     Active Substance: FUROSEMIDE
  5. COLCHICINE (COLCHICINE) [Concomitant]
     Active Substance: COLCHICINE

REACTIONS (2)
  - Swelling face [None]
  - Local swelling [None]
